FAERS Safety Report 9478715 (Version 3)
Quarter: 2013Q3

REPORT INFORMATION
  Report Type: Spontaneous
  Country: US (occurrence: US)
  Receive Date: 20130827
  Receipt Date: 20130924
  Transmission Date: 20140515
  Serious: Yes (Other)
  Sender: FDA-Public Use
  Company Number: US-TEVA-419983USA

PATIENT
  Sex: Male

DRUGS (1)
  1. CLOPIDOGREL [Suspect]

REACTIONS (2)
  - Urinary tract infection [Unknown]
  - Dysuria [Unknown]
